FAERS Safety Report 25612724 (Version 1)
Quarter: 2025Q3

REPORT INFORMATION
  Report Type: Spontaneous
  Country: US (occurrence: US)
  Receive Date: 20250728
  Receipt Date: 20250728
  Transmission Date: 20251020
  Serious: Yes (Other)
  Sender: ROCHE
  Company Number: US-ROCHE-10000347087

PATIENT
  Sex: Male

DRUGS (1)
  1. HEMLIBRA [Suspect]
     Active Substance: EMICIZUMAB-KXWH
     Indication: Dermatitis atopic
     Dosage: STRENGTH: 60MG/ 0.4 ML
     Route: 058

REACTIONS (2)
  - Procedural haemorrhage [Not Recovered/Not Resolved]
  - Off label use [Unknown]
